FAERS Safety Report 22397645 (Version 1)
Quarter: 2023Q2

REPORT INFORMATION
  Report Type: Spontaneous
  Country: CN (occurrence: None)
  Receive Date: 20230602
  Receipt Date: 20230602
  Transmission Date: 20230722
  Serious: Yes (Other)
  Sender: FDA-Public Use
  Company Number: CN-ROCHE-3357612

PATIENT
  Age: 68 Year
  Sex: Male
  Weight: 45 kg

DRUGS (5)
  1. TRASTUZUMAB [Suspect]
     Active Substance: TRASTUZUMAB
     Indication: Gastric cancer
     Route: 041
     Dates: start: 20230313
  2. FLUOROURACIL [Suspect]
     Active Substance: FLUOROURACIL
     Indication: Gastric cancer
     Dosage: DAY1-2
     Route: 041
     Dates: start: 20230313
  3. FLUOROURACIL [Suspect]
     Active Substance: FLUOROURACIL
     Dosage: 44 HOURS
     Route: 042
     Dates: start: 20230313
  4. LEUCOVORIN CALCIUM [Suspect]
     Active Substance: LEUCOVORIN CALCIUM
     Indication: Gastric cancer
     Dosage: DAY1-2
     Route: 041
     Dates: start: 20230313
  5. OXALIPLATIN [Suspect]
     Active Substance: OXALIPLATIN
     Indication: Gastric cancer
     Route: 041
     Dates: start: 20230313

REACTIONS (3)
  - White blood cell count increased [Unknown]
  - Hyperpyrexia [Recovered/Resolved]
  - Temperature intolerance [Unknown]

NARRATIVE: CASE EVENT DATE: 20230315
